FAERS Safety Report 11349048 (Version 1)
Quarter: 2015Q3

REPORT INFORMATION
  Report Type: Spontaneous
  Country: US (occurrence: US)
  Receive Date: 20150807
  Receipt Date: 20150807
  Transmission Date: 20151125
  Serious: Yes (Other)
  Sender: FDA-Public Use
  Company Number: US-PFIZER INC-2015258515

PATIENT
  Age: 54 Year
  Sex: Female
  Weight: 55 kg

DRUGS (3)
  1. GABAPENTIN. [Suspect]
     Active Substance: GABAPENTIN
     Indication: RHEUMATOID ARTHRITIS
  2. GABAPENTIN. [Suspect]
     Active Substance: GABAPENTIN
     Indication: DIABETIC NEUROPATHY
     Dosage: UNK
  3. GABAPENTIN. [Suspect]
     Active Substance: GABAPENTIN
     Indication: FIBROMYALGIA

REACTIONS (29)
  - Weight decreased [Unknown]
  - Bedridden [Unknown]
  - Depression [Unknown]
  - Hyperhidrosis [Unknown]
  - Eye movement disorder [Recovering/Resolving]
  - Crying [Unknown]
  - Amnesia [Unknown]
  - Flatulence [Unknown]
  - Abdominal distension [Unknown]
  - Dizziness [Not Recovered/Not Resolved]
  - Weight increased [Unknown]
  - Drug ineffective [Unknown]
  - Influenza like illness [Unknown]
  - Dysstasia [Unknown]
  - Coordination abnormal [Not Recovered/Not Resolved]
  - Disturbance in attention [Unknown]
  - Stress [Unknown]
  - Confusional state [Unknown]
  - Peripheral swelling [Not Recovered/Not Resolved]
  - Decreased appetite [Unknown]
  - Abnormal behaviour [Unknown]
  - Pain [Unknown]
  - Mood altered [Unknown]
  - Aggression [Unknown]
  - Clumsiness [Not Recovered/Not Resolved]
  - Anxiety [Unknown]
  - Chills [Unknown]
  - Memory impairment [Unknown]
  - Vertigo [Not Recovered/Not Resolved]

NARRATIVE: CASE EVENT DATE: 20150730
